FAERS Safety Report 7320363-7 (Version None)
Quarter: 2011Q1

REPORT INFORMATION
  Report Type: 
  Country: None (occurrence: None)
  Receive Date: 20110228
  Receipt Date: 20110217
  Transmission Date: 20110831
  Serious: Yes (Other)
  Sender: FDA-Public Use
  Company Number: A0885736A

PATIENT
  Sex: Female
  Weight: 51 kg

DRUGS (9)
  1. TRASTUZUMAB [Suspect]
     Indication: BREAST CANCER METASTATIC
     Dosage: 204MGK WEEKLY
     Route: 042
     Dates: start: 20060504
  2. DICLOFENAC SODIUM [Concomitant]
     Indication: PAIN
     Dosage: 100MG PER DAY
     Route: 048
     Dates: start: 20061209, end: 20061210
  3. LAPATINIB [Suspect]
     Indication: BREAST CANCER METASTATIC
     Dosage: 500MG PER DAY
     Route: 048
     Dates: start: 20060504
  4. MORPHINE [Concomitant]
     Indication: PAIN
     Dosage: 10MG PER DAY
     Route: 030
     Dates: start: 20061209, end: 20061209
  5. PARACETAMOL [Concomitant]
     Indication: PAIN
     Dosage: 4G FOUR TIMES PER DAY
     Route: 048
     Dates: start: 20061209, end: 20061213
  6. DOCETAXEL [Suspect]
     Indication: BREAST CANCER METASTATIC
     Dosage: 60MGM2 CYCLIC
     Route: 042
     Dates: start: 20060504
  7. AUGMENTIN '125' [Concomitant]
     Dosage: 1.2G THREE TIMES PER DAY
     Route: 042
     Dates: start: 20061208, end: 20061201
  8. TRAMADOL [Concomitant]
     Indication: PAIN
     Dosage: 100MG AS REQUIRED
     Route: 048
     Dates: start: 20061210, end: 20061213
  9. INNOHEP [Concomitant]
     Dosage: 3500IU PER DAY
     Route: 058
     Dates: start: 20061210, end: 20061213

REACTIONS (4)
  - HAEMOGLOBIN DECREASED [None]
  - HAEMATOCRIT DECREASED [None]
  - RED BLOOD CELL COUNT DECREASED [None]
  - POST PROCEDURAL COMPLICATION [None]
